FAERS Safety Report 9051146 (Version 1)
Quarter: 2013Q1

REPORT INFORMATION
  Report Type: Spontaneous
  Country: US (occurrence: US)
  Receive Date: 20130206
  Receipt Date: 20130206
  Transmission Date: 20140127
  Serious: No
  Sender: FDA-Public Use
  Company Number: US-PFIZER INC-2013045090

PATIENT
  Sex: 0

DRUGS (2)
  1. PRISTIQ [Suspect]
     Dosage: UNK
     Dates: end: 201207
  2. PRISTIQ [Suspect]
     Dosage: 50 MG, ALTERNATE DAY (EVERY OTHER NIGHT)
     Dates: start: 20130131

REACTIONS (3)
  - Heart rate abnormal [Unknown]
  - Insomnia [Unknown]
  - Anxiety [Unknown]
